FAERS Safety Report 9849459 (Version 2)
Quarter: 2014Q1

REPORT INFORMATION
  Report Type: Spontaneous
  Country: US (occurrence: None)
  Receive Date: 20140124
  Receipt Date: 20140219
  Transmission Date: 20141002
  Serious: Yes (Other)
  Sender: FDA-Public Use
  Company Number: US-MDCO-14-00011

PATIENT
  Age: 60 Year
  Sex: Female

DRUGS (2)
  1. ANGIOMAX [Suspect]
     Indication: PRODUCT USED FOR UNKNOWN INDICATION
     Dosage: 0.75 MG/KG, INTRAVENOUS BOLUS
     Route: 040
  2. CLOPIDOGREL (CLOPIDOGREL) (CLOPIDOGREL) [Concomitant]

REACTIONS (4)
  - Thrombosis in device [None]
  - Drug ineffective [None]
  - Post procedural complication [None]
  - Product quality issue [None]
